FAERS Safety Report 11203916 (Version 6)
Quarter: 2016Q3

REPORT INFORMATION
  Report Type: Spontaneous
  Country: US (occurrence: US)
  Receive Date: 20150619
  Receipt Date: 20160901
  Transmission Date: 20161109
  Serious: Yes (Hospitalization, Disabling, Other)
  Sender: FDA-Public Use
  Company Number: US-GLAXOSMITHKLINE-US2015GSK086196

PATIENT
  Age: 58 Year
  Sex: Female

DRUGS (3)
  1. NARDIL [Suspect]
     Active Substance: PHENELZINE SULFATE
     Indication: ANTIDEPRESSANT THERAPY
     Dosage: UNK
     Dates: start: 201603
  2. LAMICTAL XR [Suspect]
     Active Substance: LAMOTRIGINE
     Indication: SEIZURE
     Dosage: UNK, U
     Route: 065
     Dates: start: 2007
  3. NARDIL [Suspect]
     Active Substance: PHENELZINE SULFATE
     Indication: ANXIETY

REACTIONS (6)
  - Road traffic accident [Unknown]
  - Hospitalisation [Unknown]
  - Disability [Unknown]
  - Drug ineffective [Unknown]
  - Adverse event [Unknown]
  - Drug dose omission [Unknown]

NARRATIVE: CASE EVENT DATE: 201603
